FAERS Safety Report 5081815-6 (Version None)
Quarter: 2006Q3

REPORT INFORMATION
  Report Type: 
  Country: None (occurrence: None)
  Receive Date: 20060816
  Receipt Date: 20060814
  Transmission Date: 20061208
  Serious: Yes (Death, Hospitalization)
  Sender: FDA-Public Use
  Company Number: 13465927

PATIENT
  Age: 30 Year
  Sex: Male

DRUGS (3)
  1. LAMIVUDINE [Suspect]
     Indication: HIV INFECTION
     Dosage: 150MG PER DAY
     Route: 048
     Dates: start: 20060524
  2. STAVUDINE [Suspect]
     Indication: HIV INFECTION
     Dosage: 30MG PER DAY
     Route: 048
     Dates: start: 20060524
  3. NEVIRAPINE [Suspect]
     Indication: HIV INFECTION
     Dosage: 400MG PER DAY
     Route: 048
     Dates: start: 20060524

REACTIONS (8)
  - CHEST PAIN [None]
  - COUGH [None]
  - IMMUNE RECONSTITUTION SYNDROME [None]
  - PALLOR [None]
  - PHARYNGEAL CANDIDIASIS [None]
  - PYREXIA [None]
  - RESPIRATORY DISTRESS [None]
  - TACHYPNOEA [None]
